FAERS Safety Report 9451067 (Version 1)
Quarter: 2013Q3

REPORT INFORMATION
  Report Type: Spontaneous
  Country: GB (occurrence: GB)
  Receive Date: 20130809
  Receipt Date: 20130809
  Transmission Date: 20140515
  Serious: Yes (Disabling)
  Sender: FDA-Public Use
  Company Number: GB-TEVA-422238ISR

PATIENT
  Age: 58 Year
  Sex: Female
  Weight: 90 kg

DRUGS (6)
  1. LETROZOLE [Suspect]
     Indication: BREAST CANCER
     Dosage: 2.5 MILLIGRAM DAILY;
     Route: 048
     Dates: start: 20130621
  2. KLIOVANCE [Concomitant]
     Indication: MENSTRUAL DISORDER
     Dosage: 1 DOSAGE FORMS DAILY;
     Route: 048
     Dates: start: 2010, end: 20130606
  3. SULFASALAZINE [Concomitant]
     Indication: ARTHROPATHY
     Dosage: 4 DOSAGE FORMS DAILY;
     Route: 048
     Dates: start: 2010
  4. HYDROXYCHLOROQUINE [Concomitant]
     Indication: ARTHROPATHY
     Dosage: 1 DOSAGE FORMS DAILY;
     Route: 048
     Dates: start: 2011
  5. CELECOXIB [Concomitant]
     Indication: ARTHROPATHY
     Dosage: 200 MILLIGRAM DAILY;
     Route: 048
     Dates: start: 2012
  6. FLUOXETINE [Concomitant]
     Indication: DEPRESSION
     Dosage: 20 MILLIGRAM DAILY;
     Route: 048
     Dates: start: 2011

REACTIONS (5)
  - Hypertension [Not Recovered/Not Resolved]
  - Headache [Not Recovered/Not Resolved]
  - Local swelling [Not Recovered/Not Resolved]
  - Disturbance in attention [Not Recovered/Not Resolved]
  - Irritability [Not Recovered/Not Resolved]
